FAERS Safety Report 14890686 (Version 1)
Quarter: 2018Q2

REPORT INFORMATION
  Report Type: Spontaneous
  Country: IN (occurrence: IN)
  Receive Date: 20180514
  Receipt Date: 20180514
  Transmission Date: 20180711
  Serious: Yes (Hospitalization, Other)
  Sender: FDA-Public Use
  Company Number: IN-JNJFOC-20180508021

PATIENT
  Sex: Female
  Weight: 45.6 kg

DRUGS (12)
  1. CALCIUM [Concomitant]
     Active Substance: CALCIUM
     Indication: ELECTROLYTE IMBALANCE
     Route: 065
     Dates: start: 20180213
  2. MAGNESIUM SULFATE. [Concomitant]
     Active Substance: MAGNESIUM SULFATE
     Indication: ELECTROLYTE IMBALANCE
     Route: 065
     Dates: start: 20180205
  3. ONDEM [Concomitant]
     Indication: NAUSEA
     Route: 065
  4. BENADON [Concomitant]
     Active Substance: PYRIDOXINE HYDROCHLORIDE
     Indication: VITAMIN SUPPLEMENTATION
     Route: 065
     Dates: start: 20170906
  5. LINEZOLID. [Suspect]
     Active Substance: LINEZOLID
     Indication: TUBERCULOSIS
     Route: 048
     Dates: start: 201803, end: 20180327
  6. PREGABALIN. [Concomitant]
     Active Substance: PREGABALIN
     Indication: DRUG EFFECT DECREASED
     Route: 065
     Dates: start: 20170918
  7. BEDAQUILINE [Suspect]
     Active Substance: BEDAQUILINE
     Indication: TUBERCULOSIS
     Route: 048
     Dates: start: 20180115
  8. LINEZOLID. [Suspect]
     Active Substance: LINEZOLID
     Indication: TUBERCULOSIS
     Route: 048
     Dates: start: 20170721, end: 20180323
  9. OMEZ [Concomitant]
     Active Substance: OMEPRAZOLE
     Indication: GASTRITIS
     Route: 065
     Dates: start: 20170906
  10. MAGNESIUM SULFATE. [Concomitant]
     Active Substance: MAGNESIUM SULFATE
     Indication: ELECTROLYTE IMBALANCE
     Route: 065
  11. DELAMANID [Suspect]
     Active Substance: DELAMANID
     Indication: TUBERCULOSIS
     Route: 048
     Dates: start: 20170906
  12. CLOFAZIMINE [Suspect]
     Active Substance: CLOFAZIMINE
     Indication: TUBERCULOSIS
     Route: 048
     Dates: start: 20170721

REACTIONS (3)
  - Bone marrow failure [Unknown]
  - Electrolyte imbalance [Unknown]
  - Vomiting [Unknown]

NARRATIVE: CASE EVENT DATE: 2018
